FAERS Safety Report 17518331 (Version 1)
Quarter: 2020Q1

REPORT INFORMATION
  Report Type: Spontaneous
  Country: GB (occurrence: GB)
  Receive Date: 20200309
  Receipt Date: 20200309
  Transmission Date: 20200409
  Serious: Yes (Other)
  Sender: FDA-Public Use
  Company Number: GB-MYLANLABS-2020M1024437

PATIENT
  Age: 49 Year
  Sex: Female
  Weight: 59 kg

DRUGS (5)
  1. EPINEPHRINE MYLAN [Suspect]
     Active Substance: EPINEPHRINE
     Indication: PRODUCT USED FOR UNKNOWN INDICATION
     Dosage: UNK (11MCG/2.2ML)
     Dates: start: 20200212, end: 20200212
  2. MOMETASONE [Concomitant]
     Active Substance: MOMETASONE
     Dosage: PUFFS, INTO EACH NOSTRIL
     Dates: start: 20191004
  3. ARTICAINE [Suspect]
     Active Substance: ARTICAINE
     Indication: PRODUCT USED FOR UNKNOWN INDICATION
     Dosage: 88MG/2.2ML
     Dates: start: 20200212
  4. PREGABALIN. [Concomitant]
     Active Substance: PREGABALIN
     Dosage: 3 DOSAGE FORM, QD
     Dates: start: 20200121
  5. CHLORAMPHENICOL [Concomitant]
     Active Substance: CHLORAMPHENICOL
     Dosage: 4 GTT DROPS, QD
     Dates: start: 20191218, end: 20191223

REACTIONS (1)
  - Acute psychosis [Recovering/Resolving]

NARRATIVE: CASE EVENT DATE: 20200212
